FAERS Safety Report 14797717 (Version 1)
Quarter: 2018Q2

REPORT INFORMATION
  Report Type: Spontaneous
  Country: NO (occurrence: NO)
  Receive Date: 20180424
  Receipt Date: 20180424
  Transmission Date: 20180711
  Serious: Yes (Hospitalization)
  Sender: FDA-Public Use
  Company Number: NO-MANKIND-000054

PATIENT
  Age: 56 Year
  Sex: Male

DRUGS (1)
  1. RISPERIDONE. [Suspect]
     Active Substance: RISPERIDONE
     Indication: SCHIZOPHRENIA
     Dosage: REDUCED FROM 8 MG/D TO 2 MG/D

REACTIONS (3)
  - Atypical pneumonia [Unknown]
  - Treatment failure [Unknown]
  - Inflammation [Unknown]
